FAERS Safety Report 8598855-2 (Version None)
Quarter: 2012Q3

REPORT INFORMATION
  Report Type: 
  Country: None (occurrence: None)
  Receive Date: 20120816
  Receipt Date: 20120813
  Transmission Date: 20120928
  Serious: Yes (Other)
  Sender: FDA-Public Use
  Company Number: DE-GLAXOSMITHKLINE-D0076714A

PATIENT
  Age: 62 Year
  Sex: Female

DRUGS (3)
  1. LAMICTAL [Suspect]
     Indication: EPILEPSY
     Dosage: 250MG PER DAY
     Route: 048
  2. DIAZEPAM [Concomitant]
     Route: 065
  3. RISPERDAL [Concomitant]
     Route: 065

REACTIONS (7)
  - ANTICONVULSANT DRUG LEVEL ABOVE THERAPEUTIC [None]
  - ATAXIA [None]
  - FRACTURE [None]
  - FALL [None]
  - APHASIA [None]
  - CONFUSIONAL STATE [None]
  - GAIT DISTURBANCE [None]
